FAERS Safety Report 5081736-9 (Version None)
Quarter: 2006Q3

REPORT INFORMATION
  Report Type: 
  Country: None (occurrence: None)
  Receive Date: 20060811
  Receipt Date: 20060728
  Transmission Date: 20061208
  Serious: Yes (Other)
  Sender: FDA-Public Use
  Company Number: DEU-2006-0002230

PATIENT
  Age: 44 Year
  Sex: Female

DRUGS (2)
  1. OXYGESIC 40 MG(OXYCODONE HYDROCHLORIDE) PROLONGED-RELEASE TABLET [Suspect]
     Indication: BACK PAIN
     Dosage: 40 MG, TID, ORAL
     Route: 048
     Dates: start: 20060306
  2. ISCOVER (CLOPIDOGREL SULFATE) [Concomitant]

REACTIONS (8)
  - ASTHENIA [None]
  - BRADYCARDIA [None]
  - DIZZINESS [None]
  - DYSURIA [None]
  - FATIGUE [None]
  - PALPITATIONS [None]
  - SLEEP DISORDER [None]
  - WEIGHT DECREASED [None]
